FAERS Safety Report 8947797 (Version 2)
Quarter: 2013Q1

REPORT INFORMATION
  Report Type: Spontaneous
  Country: EG (occurrence: EG)
  Receive Date: 20121204
  Receipt Date: 20130204
  Transmission Date: 20140127
  Serious: Yes (Hospitalization)
  Sender: FDA-Public Use
  Company Number: EG-BAXTER-2012BAX025475

PATIENT
  Sex: Male

DRUGS (2)
  1. BUMINATE [Suspect]
     Indication: PRODUCT USED FOR UNKNOWN INDICATION
     Route: 065
     Dates: start: 2012
  2. BUMINATE [Suspect]
     Dosage: 4 BOTTLES
     Route: 065

REACTIONS (6)
  - Renal failure acute [Unknown]
  - Acute respiratory distress syndrome [Unknown]
  - Chills [Unknown]
  - Chills [Unknown]
  - Vomiting [Unknown]
  - Gastrointestinal disorder [Unknown]
